FAERS Safety Report 6683062-0 (Version None)
Quarter: 2010Q2

REPORT INFORMATION
  Report Type: 
  Country: None (occurrence: None)
  Receive Date: 20100413
  Receipt Date: 20100329
  Transmission Date: 20101027
  Serious: Yes (Other)
  Sender: FDA-Public Use
  Company Number: 008236

PATIENT
  Sex: Female

DRUGS (4)
  1. LEVETIRACETAM [Suspect]
     Indication: EPILEPSY
     Dosage: 1500 MG, AT CONCEPTION AND FIRST TRIMESTER, 2000 MG SECOND TRIMESTER , 2500 MG, THIRD TRIMESTER
  2. LEVETIRACETAM [Suspect]
     Indication: EPILEPSY
     Dosage: 1500 MG, AT CONCEPTION AND FIRST TRIMESTER, 2000 MG SECOND TRIMESTER , 2500 MG, THIRD TRIMESTER
  3. TOPIRAMATE [Suspect]
     Indication: EPILEPSY
     Dosage: 400 MG, AT CONCEPTION + FIRST TRIMETER, 450 MG, SECOND TRIMESTER, 400 MG , THIRD TRIMESTER
  4. TOPIRAMATE [Suspect]
     Indication: EPILEPSY
     Dosage: 400 MG, AT CONCEPTION + FIRST TRIMETER, 450 MG, SECOND TRIMESTER, 400 MG , THIRD TRIMESTER

REACTIONS (4)
  - ANTICONVULSANT DRUG LEVEL DECREASED [None]
  - COMPLEX PARTIAL SEIZURES [None]
  - GRAND MAL CONVULSION [None]
  - STATUS EPILEPTICUS [None]
